FAERS Safety Report 11857379 (Version 2)
Quarter: 2016Q1

REPORT INFORMATION
  Report Type: Spontaneous
  Country: BE (occurrence: BE)
  Receive Date: 20151221
  Receipt Date: 20160224
  Transmission Date: 20160526
  Serious: Yes (Disabling, Other)
  Sender: FDA-Public Use
  Company Number: BE-WATSON-2015-27111

PATIENT
  Age: 58 Year
  Sex: Male

DRUGS (4)
  1. PARACETAMOL [Concomitant]
     Active Substance: ACETAMINOPHEN
     Indication: PRODUCT USED FOR UNKNOWN INDICATION
     Dosage: UNK, UNKNOWN
     Route: 065
  2. VENTOLIN [Concomitant]
     Active Substance: ALBUTEROL SULFATE
     Indication: ANTASTHMATIC DRUG LEVEL
     Dosage: UNKNOWN
     Route: 065
  3. TRELSTAR [Suspect]
     Active Substance: TRIPTORELIN PAMOATE
     Indication: PARAPHILIA
     Dosage: 11.25 MG, ONCE IN 3 MONTHS
     Route: 065
     Dates: start: 201409, end: 201512
  4. SALVACYL LP [Suspect]
     Active Substance: TRIPTORELIN
     Indication: PARAPHILIA
     Dosage: 11.25 MG, ONCE IN 3 MONTHS
     Route: 065
     Dates: start: 2010

REACTIONS (7)
  - Pain [Unknown]
  - Arthralgia [Unknown]
  - Product use issue [Unknown]
  - Depression [Unknown]
  - Cluster headache [Recovered/Resolved]
  - Asthma [Unknown]
  - Mood altered [None]

NARRATIVE: CASE EVENT DATE: 2014
